FAERS Safety Report 6998141-8 (Version None)
Quarter: 2010Q3

REPORT INFORMATION
  Report Type: 
  Country: None (occurrence: None)
  Receive Date: 20100920
  Receipt Date: 20100527
  Transmission Date: 20110219
  Serious: Yes (Other)
  Sender: FDA-Public Use
  Company Number: US-ASTRAZENECA-2007UW03598

PATIENT
  Sex: Female

DRUGS (5)
  1. SEROQUEL [Suspect]
     Route: 048
     Dates: start: 20040922
  2. LORAZEPAM [Concomitant]
     Dates: start: 20040706
  3. NEURONTIN [Concomitant]
     Dates: start: 20040706
  4. ABILIFY [Concomitant]
     Dates: start: 20040804
  5. FLUOXETINE [Concomitant]
     Dates: start: 20040630

REACTIONS (2)
  - PANCREATITIS [None]
  - TYPE 2 DIABETES MELLITUS [None]
